FAERS Safety Report 23513216 (Version 1)
Quarter: 2024Q1

REPORT INFORMATION
  Report Type: Spontaneous
  Country: US (occurrence: US)
  Receive Date: 20240212
  Receipt Date: 20240212
  Transmission Date: 20240409
  Serious: Yes (Other)
  Sender: FDA-Public Use
  Company Number: US-DRL-USA-LIT/USA/24/0002374

PATIENT
  Age: 63 Year
  Sex: Female

DRUGS (9)
  1. CYCLOPHOSPHAMIDE [Suspect]
     Active Substance: CYCLOPHOSPHAMIDE
     Indication: Chronic lymphocytic leukaemia
  2. DOXORUBICIN [Suspect]
     Active Substance: DOXORUBICIN
     Indication: Chronic lymphocytic leukaemia
  3. RITUXIMAB [Suspect]
     Active Substance: RITUXIMAB
  4. PREDNISONE [Suspect]
     Active Substance: PREDNISONE
  5. VINCRISTINE [Suspect]
     Active Substance: VINCRISTINE
  6. IBRUTINIB [Suspect]
     Active Substance: IBRUTINIB
  7. VENETOCLAX [Suspect]
     Active Substance: VENETOCLAX
  8. OBINUTUZUMAB [Suspect]
     Active Substance: OBINUTUZUMAB
  9. FLUDARABINE [Suspect]
     Active Substance: FLUDARABINE PHOSPHATE

REACTIONS (3)
  - Treatment failure [Unknown]
  - Disease progression [Recovering/Resolving]
  - Cytokine release syndrome [Unknown]
